FAERS Safety Report 6368226-8 (Version None)
Quarter: 2009Q3

REPORT INFORMATION
  Report Type: 
  Country: None (occurrence: None)
  Receive Date: 20090922
  Receipt Date: 20090911
  Transmission Date: 20100115
  Serious: Yes (Hospitalization)
  Sender: FDA-Public Use
  Company Number: FR-JNJFOC-20090800631

PATIENT
  Age: 56 Year
  Sex: Male
  Weight: 105 kg

DRUGS (9)
  1. REMICADE [Suspect]
     Dosage: SEVENTH AND MOST RECENT INFUSION
     Route: 042
     Dates: start: 20081022, end: 20090702
  2. REMICADE [Suspect]
     Indication: PSORIASIS
     Dosage: 525 MG
     Route: 042
     Dates: start: 20081022, end: 20090702
  3. APROVEL [Concomitant]
     Indication: HYPERTENSION
     Route: 048
  4. BISOPROLOL FUMARATE [Concomitant]
     Indication: HYPERTENSION
     Route: 048
  5. FENOFIBRATE [Concomitant]
     Indication: DYSLIPIDAEMIA
     Route: 048
  6. LEXOMIL [Concomitant]
     Indication: ANXIETY
     Route: 048
  7. ZYRTEC [Concomitant]
     Indication: PSORIASIS
  8. AERIUS [Concomitant]
     Indication: PRURITUS
     Route: 048
  9. MOPRAL [Concomitant]

REACTIONS (5)
  - ARTHRALGIA [None]
  - ASTHENIA [None]
  - MYALGIA [None]
  - MYOCARDIAL ISCHAEMIA [None]
  - SYNOVITIS [None]
